FAERS Safety Report 15730923 (Version 1)
Quarter: 2018Q4

REPORT INFORMATION
  Report Type: Spontaneous
  Country: US (occurrence: US)
  Receive Date: 20181217
  Receipt Date: 20181217
  Transmission Date: 20190205
  Serious: Yes (Death)
  Sender: FDA-Public Use
  Company Number: None

PATIENT
  Age: 72 Year
  Sex: Male
  Weight: 98.1 kg

DRUGS (20)
  1. NIFEDIPINE. [Concomitant]
     Active Substance: NIFEDIPINE
  2. POLYETHYLENE GLYCOL [Concomitant]
     Active Substance: POLYETHYLENE GLYCOLS
  3. TAMSULOSIN [Concomitant]
     Active Substance: TAMSULOSIN
  4. FENOFIBRATE. [Concomitant]
     Active Substance: FENOFIBRATE
  5. SODIUM BICARBONATE. [Concomitant]
     Active Substance: SODIUM BICARBONATE
  6. VITAMIN D3 [Concomitant]
     Active Substance: CHOLECALCIFEROL
  7. IRON [Concomitant]
     Active Substance: IRON
  8. ALZAPRAM [Concomitant]
  9. ASCORBIC ACID. [Concomitant]
     Active Substance: ASCORBIC ACID
  10. FLUTICASONE. [Concomitant]
     Active Substance: FLUTICASONE
  11. HYDROLAZINE [Concomitant]
  12. LABETALOL [Concomitant]
     Active Substance: LABETALOL\LABETALOL HYDROCHLORIDE
  13. LEVOTHYROXINE. [Concomitant]
     Active Substance: LEVOTHYROXINE
  14. GABAPENTIN. [Concomitant]
     Active Substance: GABAPENTIN
  15. BREO ELLIPTA [Concomitant]
     Active Substance: FLUTICASONE FUROATE\VILANTEROL TRIFENATATE
  16. CLOPIDOGREL [Concomitant]
     Active Substance: CLOPIDOGREL BISULFATE
  17. FINASTERIDE. [Concomitant]
     Active Substance: FINASTERIDE
  18. GLIMEPRIDE [Concomitant]
     Active Substance: GLIMEPIRIDE
  19. CALCIUM ACETATE. [Suspect]
     Active Substance: CALCIUM ACETATE
     Indication: BLOOD PHOSPHORUS INCREASED
     Dosage: ?          QUANTITY:1 TABLET(S);?
     Route: 048
  20. TORESIMIDE [Concomitant]

REACTIONS (4)
  - Hypersensitivity [None]
  - Swollen tongue [None]
  - Respiratory arrest [None]
  - Cardiac arrest [None]

NARRATIVE: CASE EVENT DATE: 20181208
